FAERS Safety Report 21552922 (Version 3)
Quarter: 2023Q1

REPORT INFORMATION
  Report Type: Spontaneous
  Country: US (occurrence: US)
  Receive Date: 20221104
  Receipt Date: 20230220
  Transmission Date: 20230418
  Serious: Yes (Other)
  Sender: FDA-Public Use
  Company Number: US-GLENMARK PHARMACEUTICALS-2022GMK076197

PATIENT

DRUGS (2)
  1. MUPIROCIN [Suspect]
     Active Substance: MUPIROCIN
     Indication: Postoperative care
     Dosage: UNK, BID
     Route: 061
     Dates: start: 20221005
  2. CEPHALEXIN [Concomitant]
     Active Substance: CEPHALEXIN
     Indication: Antibiotic therapy
     Dosage: 500 MILLIGRAM, BID
     Route: 065

REACTIONS (6)
  - Suspected transmission of an infectious agent via product [Not Recovered/Not Resolved]
  - Scar [Not Recovered/Not Resolved]
  - Skin infection [Not Recovered/Not Resolved]
  - Scab [Not Recovered/Not Resolved]
  - Drug effective for unapproved indication [Unknown]
  - Product contamination physical [Unknown]

NARRATIVE: CASE EVENT DATE: 20221001
